FAERS Safety Report 5366749-1 (Version None)
Quarter: 2007Q2

REPORT INFORMATION
  Report Type: 
  Country: None (occurrence: None)
  Receive Date: 20070622
  Receipt Date: 20070501
  Transmission Date: 20071010
  Serious: Yes (Other)
  Sender: FDA-Public Use
  Company Number: A0648377A

PATIENT
  Sex: Female

DRUGS (11)
  1. THORAZINE [Suspect]
     Indication: DRUG USE FOR UNKNOWN INDICATION
     Route: 048
     Dates: start: 19940101, end: 20020101
  2. XANAX [Concomitant]
  3. ATIVAN [Concomitant]
  4. LITHIUM CARBONATE [Concomitant]
  5. NAVANE [Concomitant]
  6. ELAVIL [Concomitant]
  7. PAMELOR [Concomitant]
  8. EFFEXOR [Concomitant]
  9. SYNTHROID [Concomitant]
  10. PROZAC [Concomitant]
  11. AMBIEN [Concomitant]

REACTIONS (2)
  - PARKINSON'S DISEASE [None]
  - PARKINSONISM [None]
